FAERS Safety Report 15587187 (Version 1)
Quarter: 2018Q4

REPORT INFORMATION
  Report Type: Spontaneous
  Country: DE (occurrence: DE)
  Receive Date: 20181105
  Receipt Date: 20181105
  Transmission Date: 20190205
  Serious: Yes (Other)
  Sender: FDA-Public Use
  Company Number: DE-ELI_LILLY_AND_COMPANY-DE201810015273

PATIENT
  Sex: Female

DRUGS (1)
  1. TERIPARATIDE [Suspect]
     Active Substance: TERIPARATIDE
     Indication: PSEUDARTHROSIS
     Dosage: UNK, UNKNOWN
     Route: 065
     Dates: start: 2011

REACTIONS (2)
  - Off label use [Recovered/Resolved]
  - Focal segmental glomerulosclerosis [Unknown]

NARRATIVE: CASE EVENT DATE: 2011
